FAERS Safety Report 5704926-8 (Version None)
Quarter: 2008Q2

REPORT INFORMATION
  Report Type: 
  Country: None (occurrence: None)
  Receive Date: 20080414
  Receipt Date: 20080319
  Transmission Date: 20081010
  Serious: No
  Sender: FDA-Public Use
  Company Number: US-BOEHRINGER INGELHEIM GMBH, GERMANY-2008-BP-04363BP

PATIENT
  Age: 52 Year
  Sex: Male

DRUGS (1)
  1. FLOMAX [Suspect]
     Indication: NEPHROLITHIASIS
     Route: 048
     Dates: start: 20080127, end: 20080211

REACTIONS (3)
  - EJACULATION FAILURE [None]
  - MICTURITION DISORDER [None]
  - PENIS DISORDER [None]
